FAERS Safety Report 6339054-4 (Version None)
Quarter: 2009Q3

REPORT INFORMATION
  Report Type: 
  Country: None (occurrence: None)
  Receive Date: 20090903
  Receipt Date: 20090824
  Transmission Date: 20100115
  Serious: Yes (Hospitalization)
  Sender: FDA-Public Use
  Company Number: US-ELI_LILLY_AND_COMPANY-US200908005065

PATIENT
  Sex: Male
  Weight: 85.3 kg

DRUGS (18)
  1. PEMETREXED [Suspect]
     Indication: NON-SMALL CELL LUNG CANCER
     Dosage: 500 MG/M2, OTHER
     Route: 042
     Dates: start: 20090727
  2. CARBOPLATIN [Suspect]
     Indication: NON-SMALL CELL LUNG CANCER
     Dosage: 446 MG, OTHER
     Route: 042
     Dates: start: 20090727
  3. RADIATION [Suspect]
     Indication: NON-SMALL CELL LUNG CANCER
     Dosage: UNK, UNK
     Dates: start: 20090727
  4. FOLIC ACID [Concomitant]
     Dates: start: 20090713
  5. VITAMIN B-12 [Concomitant]
     Dosage: UNK, UNK
     Dates: start: 20090713
  6. DEXAMETHASONE [Concomitant]
  7. MEGESTROL ACETATE [Concomitant]
     Indication: HORMONE THERAPY
  8. PLAVIX [Concomitant]
     Indication: PROPHYLAXIS
     Dosage: 75 MG, EACH MORNING
  9. CRESTOR [Concomitant]
     Indication: BLOOD CHOLESTEROL
     Dosage: 20 MG, EACH EVENING
  10. OMEPRAZOLE [Concomitant]
     Indication: REFLUX GASTRITIS
     Dosage: 20 MG, EACH MORNING
  11. SPIRONOLACTONE [Concomitant]
     Indication: POLYURIA
     Dosage: UNK, DAILY (1/D)
  12. ATENOLOL [Concomitant]
     Indication: CARDIOVASCULAR DISORDER
     Dosage: 100 MG, EACH MORNING
  13. ASPIRIN [Concomitant]
     Dosage: 81 MG, EACH EVENING
  14. FLOMAX [Concomitant]
     Dosage: 0.4 MG, EACH EVENING
  15. DIGOXIN [Concomitant]
     Indication: ATRIAL FIBRILLATION
     Dosage: 0.25 MG, DAILY (1/D)
  16. TUSSIONEX [Concomitant]
     Indication: ANTIALLERGIC THERAPY
     Dosage: UNK, AS NEEDED
  17. BENZONATATE [Concomitant]
     Dosage: UNK, AS NEEDED
  18. BENEFIBER [Concomitant]
     Indication: DYSPEPSIA
     Dosage: UNK, DAILY (1/D)

REACTIONS (3)
  - DEHYDRATION [None]
  - NAUSEA [None]
  - VOMITING [None]
